FAERS Safety Report 16698179 (Version 3)
Quarter: 2020Q1

REPORT INFORMATION
  Report Type: Spontaneous
  Country: ES (occurrence: ES)
  Receive Date: 20190813
  Receipt Date: 20200228
  Transmission Date: 20200409
  Serious: Yes (Hospitalization)
  Sender: FDA-Public Use
  Company Number: ES-CELGENEUS-ESP-20190802693

PATIENT
  Age: 53 Year
  Sex: Female
  Weight: 62.5 kg

DRUGS (21)
  1. ABRAXANE [Suspect]
     Active Substance: PACLITAXEL
     Indication: PANCREATIC CARCINOMA METASTATIC
     Route: 065
     Dates: start: 20190715, end: 20190715
  2. ABRAXANE [Suspect]
     Active Substance: PACLITAXEL
     Route: 065
     Dates: start: 20190909, end: 20190909
  3. MEDI 9447 [Concomitant]
     Active Substance: OLECLUMAB
     Route: 041
     Dates: start: 20191007, end: 20191007
  4. MEDI 9447 [Concomitant]
     Active Substance: OLECLUMAB
     Route: 041
     Dates: start: 20191104, end: 20191104
  5. GEMCITABINE. [Concomitant]
     Active Substance: GEMCITABINE
     Route: 065
     Dates: start: 20191104, end: 20191104
  6. ABRAXANE [Suspect]
     Active Substance: PACLITAXEL
     Route: 065
     Dates: start: 20190801, end: 20190801
  7. ABRAXANE [Suspect]
     Active Substance: PACLITAXEL
     Route: 065
     Dates: start: 20191007, end: 20191009
  8. MEDI 9447 [Concomitant]
     Active Substance: OLECLUMAB
     Indication: PANCREATIC CARCINOMA METASTATIC
     Route: 041
     Dates: start: 20190715, end: 20190715
  9. MEDI 9447 [Concomitant]
     Active Substance: OLECLUMAB
     Route: 041
     Dates: start: 20190814, end: 20190814
  10. GEMCITABINE. [Concomitant]
     Active Substance: GEMCITABINE
     Route: 065
     Dates: start: 20190814, end: 20190814
  11. GEMCITABINE. [Concomitant]
     Active Substance: GEMCITABINE
     Indication: PANCREATIC CARCINOMA METASTATIC
     Route: 065
     Dates: start: 20190715, end: 20190715
  12. ABRAXANE [Suspect]
     Active Substance: PACLITAXEL
     Route: 065
     Dates: start: 20191104
  13. GEMCITABINE. [Concomitant]
     Active Substance: GEMCITABINE
     Route: 065
     Dates: start: 20190801, end: 20190801
  14. GEMCITABINE. [Concomitant]
     Active Substance: GEMCITABINE
     Route: 065
     Dates: start: 20191007, end: 20191007
  15. ABRAXANE [Suspect]
     Active Substance: PACLITAXEL
     Route: 065
     Dates: start: 20190723
  16. MEDI 9447 [Concomitant]
     Active Substance: OLECLUMAB
     Route: 041
     Dates: start: 20190801, end: 20190801
  17. ABRAXANE [Suspect]
     Active Substance: PACLITAXEL
     Route: 065
     Dates: start: 20191118
  18. MEDI 9447 [Concomitant]
     Active Substance: OLECLUMAB
     Route: 041
     Dates: start: 20190909, end: 20190909
  19. ABRAXANE [Suspect]
     Active Substance: PACLITAXEL
     Route: 065
     Dates: start: 20190814, end: 20190814
  20. GEMCITABINE. [Concomitant]
     Active Substance: GEMCITABINE
     Route: 065
     Dates: start: 20190909, end: 20190909
  21. GEMCITABINE. [Concomitant]
     Active Substance: GEMCITABINE
     Route: 065
     Dates: start: 20191118

REACTIONS (1)
  - Gastrointestinal haemorrhage [Recovered/Resolved]

NARRATIVE: CASE EVENT DATE: 20190721
